FAERS Safety Report 4907825-4 (Version None)
Quarter: 2006Q1

REPORT INFORMATION
  Report Type: 
  Country: None (occurrence: None)
  Receive Date: 20060210
  Receipt Date: 20060131
  Transmission Date: 20060701
  Serious: Yes (Hospitalization)
  Sender: FDA-Public Use
  Company Number: GB-AMGEN-UK167106

PATIENT
  Age: 68 Year
  Sex: Male

DRUGS (8)
  1. ARANESP [Suspect]
     Indication: RENAL FAILURE CHRONIC
     Route: 065
  2. RAMIPRIL [Suspect]
     Route: 048
     Dates: end: 20051213
  3. FUROSEMIDE [Concomitant]
     Route: 048
     Dates: end: 20051202
  4. ADALAT - SLOW RELEASE [Concomitant]
     Route: 048
     Dates: end: 20051214
  5. OMEPRAZOLE [Concomitant]
     Route: 048
  6. FERROUS SULFATE TAB [Concomitant]
     Route: 048
  7. ASPIRIN [Concomitant]
     Route: 048
  8. LANTUS [Concomitant]
     Route: 058

REACTIONS (1)
  - PULMONARY EOSINOPHILIA [None]
